FAERS Safety Report 8884543 (Version 1)
Quarter: 2012Q4

REPORT INFORMATION
  Report Type: 
  Country: US (occurrence: US)
  Receive Date: 20121102
  Receipt Date: 20121102
  Transmission Date: 20130627
  Serious: No
  Sender: FDA-Public Use
  Company Number: US-ASTRAZENECA-2012SE16944

PATIENT
  Age: 70 Year
  Sex: Female

DRUGS (16)
  1. CRESTOR [Suspect]
     Indication: BLOOD CHOLESTEROL INCREASED
     Route: 048
     Dates: start: 2011
  2. HUMIRA [Suspect]
     Indication: PSORIASIS
     Dosage: 40MG/0.8ML 1 IN 2 WEEK
     Route: 065
     Dates: start: 20111208
  3. HUMIRA [Suspect]
     Indication: PSORIASIS
     Dosage: 40MG/0.8ML 1 IN 2 WEEK
     Route: 065
     Dates: start: 20111215
  4. HUMIRA [Suspect]
     Indication: PSORIASIS
     Dosage: 40MG/0.8ML
     Route: 065
  5. OMEPRAZOLE [Concomitant]
     Indication: GASTROOESOPHAGEAL REFLUX DISEASE
  6. LISINOPRIL [Concomitant]
     Indication: HYPERTENSION
  7. ESTROGENS CONJUGATED [Concomitant]
     Indication: OESTROGEN REPLACEMENT THERAPY
  8. LORATADINE [Concomitant]
     Indication: MULTIPLE ALLERGIES
  9. GLIMEPIRIDE [Concomitant]
     Indication: DIABETES MELLITUS
  10. METANX [Concomitant]
     Indication: VITAMIN B COMPLEX DEFICIENCY
  11. ISOSORBIDE MONO [Concomitant]
     Indication: HYPERTENSION
  12. LEVOTHYROXINE SODIUM [Concomitant]
     Indication: HYPOTHYROIDISM
  13. ACETYLSALICYLIC ACID [Concomitant]
     Indication: PROPHYLAXIS
  14. TUMS [Concomitant]
     Indication: MINERAL SUPPLEMENTATION
  15. COLECALCIFEROL [Concomitant]
     Indication: SUPPLEMENTATION THERAPY
  16. ATORVASTATIN [Concomitant]

REACTIONS (4)
  - Injection site pain [Unknown]
  - Injection site pain [Unknown]
  - Fatigue [Unknown]
  - Myalgia [Unknown]
